FAERS Safety Report 9296794 (Version 1)
Quarter: 2013Q2

REPORT INFORMATION
  Report Type: Spontaneous
  Country: US (occurrence: US)
  Receive Date: 20130517
  Receipt Date: 20130517
  Transmission Date: 20140414
  Serious: Yes (Hospitalization, Other)
  Sender: FDA-Public Use
  Company Number: US-FRI-1000040349

PATIENT
  Age: 71 Year
  Sex: Male

DRUGS (1)
  1. DALIRESP [Suspect]
     Indication: CHRONIC OBSTRUCTIVE PULMONARY DISEASE
     Dosage: 500MCG
     Route: 048
     Dates: start: 201107, end: 201208

REACTIONS (3)
  - Basal cell carcinoma [Unknown]
  - Pancreatitis [Recovered/Resolved]
  - Syncope [Unknown]
